FAERS Safety Report 9654215 (Version 3)
Quarter: 2013Q4

REPORT INFORMATION
  Report Type: Spontaneous
  Country: JP (occurrence: JP)
  Receive Date: 20131029
  Receipt Date: 20131126
  Transmission Date: 20140711
  Serious: Yes (Other)
  Sender: FDA-Public Use
  Company Number: JP-B.I. PHARMACEUTICALS,INC./RIDGEFIELD-2013-BI-34439NB

PATIENT
  Age: 75 Year
  Sex: Female
  Weight: 50 kg

DRUGS (11)
  1. PRAZAXA [Suspect]
     Indication: ATRIAL FIBRILLATION
     Dosage: 300 MG
     Route: 048
     Dates: start: 20131012, end: 20131029
  2. RADICUT [Suspect]
     Indication: CEREBRAL INFARCTION
     Dosage: 60 MG
     Route: 042
     Dates: start: 20131011, end: 20131025
  3. PLAVIX [Suspect]
     Dates: start: 20131105
  4. CELECOX / CELECOXIB [Concomitant]
     Dosage: 200 MG
     Route: 048
  5. MUCOSTA / REBAMIPIDE [Concomitant]
     Dosage: 200 MG
     Route: 048
  6. ADALAT-CR / NIFEDIPINE [Concomitant]
     Dosage: 40 MG
     Route: 048
  7. OPALMON / LIMAPROST ALFADEX [Concomitant]
     Indication: BACK PAIN
     Dosage: 15 MCG
     Route: 048
     Dates: start: 20130708
  8. PLETAAL OD / CILOSTAZOL [Concomitant]
     Dosage: 100 MG
     Route: 048
  9. LYRICA / PREGABALIN [Concomitant]
     Indication: BACK PAIN
     Dosage: 150 MG
     Route: 048
     Dates: start: 20130708
  10. FLUITRAN / TRICHLORMETHIAZIDE [Concomitant]
     Dosage: 1 MG
     Route: 048
  11. OZAPEN / OZAGREL SODIUM [Concomitant]
     Indication: CEREBRAL INFARCTION
     Dosage: 160 MG
     Route: 042
     Dates: start: 20131011, end: 20131012

REACTIONS (5)
  - White blood cell count decreased [Recovered/Resolved]
  - Granulocyte count decreased [Recovered/Resolved]
  - Agranulocytosis [Recovered/Resolved]
  - Thrombocytopenia [Recovered/Resolved]
  - C-reactive protein increased [Recovered/Resolved]
